FAERS Safety Report 13996343 (Version 1)
Quarter: 2017Q3

REPORT INFORMATION
  Report Type: Report from Study
  Country: None (occurrence: CA)
  Receive Date: 20170921
  Receipt Date: 20170921
  Transmission Date: 20171128
  Serious: Yes (Hospitalization)
  Sender: FDA-Public Use
  Company Number: CA-ABBVIE-17K-028-2106813-00

PATIENT
  Age: 68 Year
  Sex: Female

DRUGS (2)
  1. HUMIRA [Suspect]
     Active Substance: ADALIMUMAB
     Route: 058
     Dates: start: 201706
  2. HUMIRA [Suspect]
     Active Substance: ADALIMUMAB
     Indication: CROHN^S DISEASE
     Route: 058
     Dates: start: 20161223, end: 201706

REACTIONS (3)
  - Sleep apnoea syndrome [Unknown]
  - Gastrointestinal inflammation [Recovering/Resolving]
  - Hypoxia [Unknown]

NARRATIVE: CASE EVENT DATE: 201706
